FAERS Safety Report 9541919 (Version 2)
Quarter: 2013Q4

REPORT INFORMATION
  Report Type: Spontaneous
  Country: BR (occurrence: None)
  Receive Date: 20130918
  Receipt Date: 20131016
  Transmission Date: 20140711
  Serious: Yes (Disabling, Other)
  Sender: FDA-Public Use
  Company Number: ENTC2013-0335

PATIENT
  Age: 71 Year
  Sex: Female

DRUGS (1)
  1. STALEVO [Suspect]
     Indication: PARKINSON^S DISEASE

REACTIONS (3)
  - Abasia [None]
  - Intervertebral disc protrusion [None]
  - Dysstasia [None]
